FAERS Safety Report 6378568-8 (Version None)
Quarter: 2009Q3

REPORT INFORMATION
  Report Type: 
  Country: None (occurrence: None)
  Receive Date: 20090928
  Receipt Date: 20090917
  Transmission Date: 20100115
  Serious: Yes (Other)
  Sender: FDA-Public Use
  Company Number: GB-JNJFOC-20090905242

PATIENT
  Age: 69 Year
  Sex: Male
  Weight: 57 kg

DRUGS (6)
  1. REMICADE [Suspect]
     Indication: RHEUMATOID ARTHRITIS
     Route: 042
     Dates: start: 20030626
  2. ACETAMINOPHEN WITH PROPOXYPHENE HCL TAB [Concomitant]
  3. CALCICHEW [Concomitant]
  4. LACTULOSE [Concomitant]
  5. VOLTAREN [Concomitant]
  6. METHOTREXATE [Concomitant]

REACTIONS (1)
  - LYMPHOMA [None]
